FAERS Safety Report 9351269 (Version 2)
Quarter: 2013Q3

REPORT INFORMATION
  Report Type: Spontaneous
  Country: US (occurrence: US)
  Receive Date: 20130617
  Receipt Date: 20130814
  Transmission Date: 20140515
  Serious: Yes (Other)
  Sender: FDA-Public Use
  Company Number: US-PFIZER INC-2013181026

PATIENT
  Age: 70 Year
  Sex: Female
  Weight: 100 kg

DRUGS (6)
  1. NITROSTAT [Suspect]
     Indication: VASCULAR GRAFT
     Dosage: UNK
  2. NITROSTAT [Suspect]
     Dosage: UNK
  3. NEXIUM [Concomitant]
     Indication: GASTRIC DISORDER
     Dosage: UNK
  4. ASPIRIN [Concomitant]
     Dosage: UNK, 1X/DAY
  5. DIOVAN [Concomitant]
     Indication: BLOOD PRESSURE ABNORMAL
     Dosage: 0.5 DF, 1X/DAY
  6. ISOSORBIDE [Concomitant]
     Indication: BLOOD PRESSURE ABNORMAL
     Dosage: UNK

REACTIONS (2)
  - Myocardial infarction [Recovering/Resolving]
  - Drug ineffective [Unknown]
